FAERS Safety Report 25733270 (Version 1)
Quarter: 2025Q3

REPORT INFORMATION
  Report Type: Spontaneous
  Country: US (occurrence: US)
  Receive Date: 20250828
  Receipt Date: 20250828
  Transmission Date: 20251021
  Serious: No
  Sender: AMGEN
  Company Number: US-AMGEN-USASP2025167447

PATIENT
  Age: 43 Year
  Sex: Female

DRUGS (7)
  1. PREDNISONE [Suspect]
     Active Substance: PREDNISONE
     Indication: Product used for unknown indication
     Route: 065
  2. CALCIPOTRIENE [Concomitant]
     Active Substance: CALCIPOTRIENE
     Route: 061
  3. CLOBETASOL [Concomitant]
     Active Substance: CLOBETASOL
     Dosage: UNK UNK, BID (DOSE: 1 CREAM FREQUENCY: BID AS DIRECTED) (0.05% SCALP-DOSE: 1 SOLUTION FREQUENCY: BID
     Route: 061
  4. SUMATRIPTAN [Concomitant]
     Active Substance: SUMATRIPTAN
     Route: 045
  5. EXCEDRIN [Concomitant]
     Active Substance: ACETAMINOPHEN\ASPIRIN\CAFFEINE
     Route: 048
  6. METOPROLOL SUCCINATE [Concomitant]
     Active Substance: METOPROLOL SUCCINATE
     Route: 048
  7. NAPROXEN [Concomitant]
     Active Substance: NAPROXEN
     Route: 048

REACTIONS (3)
  - Seborrhoeic dermatitis [Unknown]
  - Psoriasis [Unknown]
  - Pain [Unknown]
